FAERS Safety Report 14196813 (Version 1)
Quarter: 2017Q4

REPORT INFORMATION
  Report Type: Spontaneous
  Country: US (occurrence: US)
  Receive Date: 20171116
  Receipt Date: 20171116
  Transmission Date: 20180321
  Serious: No
  Sender: FDA-Public Use
  Company Number: US-SA-2017SA066834

PATIENT
  Age: 66 Year
  Sex: Female

DRUGS (1)
  1. RENVELA [Suspect]
     Active Substance: SEVELAMER CARBONATE
     Dosage: FORM: POWDER
     Route: 065
     Dates: start: 201612

REACTIONS (1)
  - Blood glucose abnormal [Unknown]
